FAERS Safety Report 8556009-X (Version None)
Quarter: 2012Q3

REPORT INFORMATION
  Report Type: 
  Country: None (occurrence: None)
  Receive Date: 20120801
  Receipt Date: 20120723
  Transmission Date: 20120928
  Serious: Yes (Hospitalization)
  Sender: FDA-Public Use
  Company Number: US-009507513-1207USA009980

PATIENT

DRUGS (4)
  1. CYMBALTA [Suspect]
     Dosage: 50 MG, QD
  2. ACETAMINOPHEN [Suspect]
     Dosage: 650 MG, QID
     Route: 048
  3. WARFARIN [Suspect]
     Dosage: 1-6 MG, QD
     Route: 048
  4. ZOCOR [Suspect]
     Dosage: 20 MG, QD
     Route: 048

REACTIONS (5)
  - DRUG INTERACTION [None]
  - ALANINE AMINOTRANSFERASE INCREASED [None]
  - ASPARTATE AMINOTRANSFERASE INCREASED [None]
  - INTERNATIONAL NORMALISED RATIO INCREASED [None]
  - HAEMOGLOBIN DECREASED [None]
